FAERS Safety Report 6092990-9 (Version None)
Quarter: 2009Q1

REPORT INFORMATION
  Report Type: 
  Country: None (occurrence: None)
  Receive Date: 20090219
  Receipt Date: 20090209
  Transmission Date: 20090719
  Serious: Yes (Death)
  Sender: FDA-Public Use
  Company Number: 2009US000231

PATIENT
  Age: 55 Year
  Sex: Male

DRUGS (6)
  1. AMEVIVE [Suspect]
     Indication: DRUG USE FOR UNKNOWN INDICATION
     Dosage: 15 MG, /D
     Dates: start: 20081010
  2. AMEVIVE [Suspect]
     Indication: DRUG USE FOR UNKNOWN INDICATION
     Dosage: 15 MG, /D
     Dates: start: 20081203
  3. MORPHINE [Concomitant]
  4. FLUCONAZOLE (LUCONAZOLE) [Concomitant]
  5. ACYCLOCIR (ACICLOVIR) [Concomitant]
  6. LINEZOLID [Concomitant]

REACTIONS (1)
  - SEPSIS [None]
